FAERS Safety Report 20405273 (Version 1)
Quarter: 2022Q1

REPORT INFORMATION
  Report Type: Spontaneous
  Country: US (occurrence: US)
  Receive Date: 20220131
  Receipt Date: 20220131
  Transmission Date: 20220423
  Serious: No
  Sender: FDA-Public Use
  Company Number: US-PFIZER INC-202200140369

PATIENT
  Age: 71 Year
  Sex: Male
  Weight: 108.86 kg

DRUGS (1)
  1. PAXLOVID [Suspect]
     Active Substance: NIRMATRELVIR\RITONAVIR
     Indication: COVID-19
     Dosage: 100 MG OF RITONAVIR AND 2, 150MG OF NIRMATRELVIR, 3 TABLETS IN THE MORNING AND 3 TABLETS IN THE EVEN
     Dates: start: 20220122

REACTIONS (7)
  - Epigastric discomfort [Not Recovered/Not Resolved]
  - Dizziness [Recovering/Resolving]
  - Balance disorder [Recovering/Resolving]
  - Dysgeusia [Not Recovered/Not Resolved]
  - Tremor [Unknown]
  - Anxiety [Unknown]
  - Feeling jittery [Unknown]
